FAERS Safety Report 20252960 (Version 1)
Quarter: 2021Q4

REPORT INFORMATION
  Report Type: Spontaneous
  Country: US (occurrence: US)
  Receive Date: 20211229
  Receipt Date: 20211229
  Transmission Date: 20220303
  Serious: Yes (Other)
  Sender: FDA-Public Use
  Company Number: US-PURDUE-USA-2020-0225454

PATIENT
  Sex: Male

DRUGS (1)
  1. OXYCONTIN [Suspect]
     Active Substance: OXYCODONE HYDROCHLORIDE
     Indication: Pain
     Dosage: 16 TABLETS (40 MG, DAILY)
     Route: 048
     Dates: start: 2000, end: 2009

REACTIONS (6)
  - Drug dependence [Unknown]
  - Sexual dysfunction [Unknown]
  - Mental disorder [Unknown]
  - Pain [Unknown]
  - Depression [Unknown]
  - Amnesia [Unknown]
